FAERS Safety Report 8854237 (Version 1)
Quarter: 2012Q4

REPORT INFORMATION
  Report Type: Spontaneous
  Country: US (occurrence: None)
  Receive Date: 20121022
  Receipt Date: 20121022
  Transmission Date: 20130627
  Serious: Yes (Hospitalization)
  Sender: FDA-Public Use
  Company Number: None

PATIENT
  Age: 7 Year
  Sex: Male

DRUGS (2)
  1. TRILEPTAL [Suspect]
     Route: 048
     Dates: start: 200701
  2. TRILEPTAL [Suspect]
     Route: 048

REACTIONS (6)
  - Abdominal tenderness [None]
  - Aspartate aminotransferase increased [None]
  - Alanine aminotransferase increased [None]
  - Gamma-glutamyltransferase increased [None]
  - Abdominal pain [None]
  - Pyrexia [None]
